FAERS Safety Report 22519427 (Version 1)
Quarter: 2023Q2

REPORT INFORMATION
  Report Type: Report from Study
  Country: US (occurrence: US)
  Receive Date: 20230605
  Receipt Date: 20230605
  Transmission Date: 20230722
  Serious: Yes (Death)
  Sender: FDA-Public Use
  Company Number: US-MYLANLABS-2023M1057038

PATIENT

DRUGS (3)
  1. EMTRICITABINE\TENOFOVIR DISOPROXIL [Suspect]
     Active Substance: EMTRICITABINE\TENOFOVIR DISOPROXIL
     Indication: HIV infection
     Dosage: 200 MILLIGRAM, QD
     Route: 065
     Dates: start: 20220809, end: 20230125
  2. DARUNAVIR [Suspect]
     Active Substance: DARUNAVIR
     Indication: HIV infection
     Dosage: 800 MILLIGRAM, QD
     Route: 065
     Dates: start: 20220809, end: 20230125
  3. RITONAVIR [Suspect]
     Active Substance: RITONAVIR
     Indication: HIV infection
     Dosage: UNK UNK, QD. (PER DAY)
     Route: 065
     Dates: start: 20220809, end: 20230105

REACTIONS (2)
  - Death [Fatal]
  - Foetal exposure during pregnancy [Recovered/Resolved]
